FAERS Safety Report 4282990-3 (Version None)
Quarter: 2004Q1

REPORT INFORMATION
  Report Type: 
  Country: None (occurrence: None)
  Receive Date: 20040129
  Receipt Date: 20040122
  Transmission Date: 20041129
  Serious: Yes (Other)
  Sender: FDA-Public Use
  Company Number: US-JNJFOC-20040104592

PATIENT
  Age: 50 Year
  Sex: Female

DRUGS (1)
  1. DURAGESIC [Suspect]
     Dosage: 25 UG/HR, ORAL
     Route: 048
     Dates: start: 20040121

REACTIONS (1)
  - MEDICATION ERROR [None]
